FAERS Safety Report 5079613-2 (Version None)
Quarter: 2006Q3

REPORT INFORMATION
  Report Type: 
  Country: None (occurrence: None)
  Receive Date: 20060814
  Receipt Date: 20060614
  Transmission Date: 20061208
  Serious: Yes (Hospitalization)
  Sender: FDA-Public Use
  Company Number: JP-BOEHRINGER INGELHEIM PHARMACEUTICALS, INC.-2006-BP-06783NB

PATIENT
  Sex: Female

DRUGS (8)
  1. BI-SIFROL TABLETS [Suspect]
     Indication: PARKINSON'S DISEASE
     Route: 048
     Dates: start: 20051122, end: 20060427
  2. MENESIT [Suspect]
     Indication: PARKINSON'S DISEASE
     Route: 048
     Dates: start: 20051022
  3. FP [Suspect]
     Indication: PARKINSON'S DISEASE
     Route: 048
     Dates: start: 20051022, end: 20060414
  4. SYMMETREL [Suspect]
     Indication: PARKINSON'S DISEASE
     Route: 048
     Dates: start: 20051022, end: 20060427
  5. DEPAS [Concomitant]
     Indication: ANXIETY
     Route: 048
     Dates: start: 20051122
  6. MAGNESIUM OXIDE [Concomitant]
     Indication: CONSTIPATION
     Route: 048
     Dates: start: 20051122
  7. PURSENNID (SENNOSIDE) [Concomitant]
     Indication: CONSTIPATION
     Route: 048
     Dates: start: 20051122
  8. PARIET [Concomitant]
     Indication: GASTRITIS
     Route: 048
     Dates: start: 20060414, end: 20060425

REACTIONS (1)
  - DELIRIUM [None]
